FAERS Safety Report 8740019 (Version 2)
Quarter: 2013Q1

REPORT INFORMATION
  Report Type: Spontaneous
  Country: IL (occurrence: IL)
  Receive Date: 20120823
  Receipt Date: 20130108
  Transmission Date: 20140127
  Serious: Yes (Death, Hospitalization, Other)
  Sender: FDA-Public Use
  Company Number: IL-ELI_LILLY_AND_COMPANY-IL201208006002

PATIENT
  Age: 70 Year
  Sex: Male

DRUGS (2)
  1. CIALIS [Suspect]
     Dosage: 5 MG, UNK
     Route: 048
  2. CIALIS [Suspect]
     Dosage: 10 MG, UNK

REACTIONS (2)
  - Death [Fatal]
  - Muscle contractions involuntary [Recovered/Resolved]
